FAERS Safety Report 11682789 (Version 1)
Quarter: 2015Q4

REPORT INFORMATION
  Report Type: Spontaneous
  Country: US (occurrence: None)
  Receive Date: 20151029
  Receipt Date: 20151029
  Transmission Date: 20160304
  Serious: Yes (Other)
  Sender: FDA-Public Use
  Company Number: US-MDT-ADR-2015-02043

PATIENT
  Age: 70 Year
  Sex: Male

DRUGS (1)
  1. BACLOFEN INTRATHECAL - 2000 MCG/ML [Suspect]
     Active Substance: BACLOFEN
     Dosage: 910.4 MCG/DAY

REACTIONS (2)
  - Muscle spasms [None]
  - Loss of control of legs [None]
